FAERS Safety Report 6274256-7 (Version None)
Quarter: 2009Q3

REPORT INFORMATION
  Report Type: 
  Country: None (occurrence: None)
  Receive Date: 20090716
  Receipt Date: 20090702
  Transmission Date: 20100115
  Serious: Yes (Death)
  Sender: FDA-Public Use
  Company Number: 2009002001

PATIENT
  Age: 68 Year

DRUGS (2)
  1. TARCEVA [Suspect]
     Indication: LUNG NEOPLASM MALIGNANT
     Dosage: ORAL
     Route: 048
  2. GEMCITABINE [Concomitant]

REACTIONS (2)
  - MULTI-ORGAN FAILURE [None]
  - THROMBOTIC THROMBOCYTOPENIC PURPURA [None]
